FAERS Safety Report 12351802 (Version 1)
Quarter: 2016Q2

REPORT INFORMATION
  Report Type: Report from Study
  Country: US (occurrence: US)
  Receive Date: 20160510
  Receipt Date: 20160510
  Transmission Date: 20160815
  Serious: Yes (Hospitalization, Other)
  Sender: FDA-Public Use
  Company Number: US-009507513-1605USA004932

PATIENT
  Age: 55 Year
  Sex: Male
  Weight: 86.3 kg

DRUGS (1)
  1. PEMBROLIZUMAB. [Suspect]
     Active Substance: PEMBROLIZUMAB
     Dosage: UNK

REACTIONS (11)
  - Abdominal distension [Unknown]
  - Pallor [Unknown]
  - Peripheral coldness [Unknown]
  - Pancreatitis [Unknown]
  - Local swelling [Unknown]
  - Decreased activity [Unknown]
  - Pelvic abscess [Unknown]
  - Appetite disorder [Unknown]
  - Rash [Unknown]
  - Pulse absent [Unknown]
  - Fatigue [Unknown]

NARRATIVE: CASE EVENT DATE: 2016
